FAERS Safety Report 10068753 (Version 5)
Quarter: 2014Q2

REPORT INFORMATION
  Report Type: Report from Study
  Country: US (occurrence: US)
  Receive Date: 20140409
  Receipt Date: 20140422
  Transmission Date: 20141212
  Serious: Yes (Hospitalization)
  Sender: FDA-Public Use
  Company Number: US-EISAI INC-AP356-00613-CLI-US

PATIENT
  Age: 56 Year
  Sex: Male
  Weight: 89.7 kg

DRUGS (3)
  1. LORCASERIN HYDROCHLORIDE [Suspect]
     Indication: OBESITY
     Route: 048
     Dates: start: 20140104, end: 20140326
  2. PHENTERMINE [Suspect]
     Indication: OBESITY
     Dosage: DOUBLE-BLIND
     Route: 048
     Dates: start: 20140104, end: 20140326
  3. LISINOPRIL [Concomitant]

REACTIONS (1)
  - Atrial fibrillation [Recovered/Resolved]
